FAERS Safety Report 5726126-8 (Version None)
Quarter: 2008Q2

REPORT INFORMATION
  Report Type: 
  Country: None (occurrence: None)
  Receive Date: 20080501
  Receipt Date: 20080501
  Transmission Date: 20081010
  Serious: No
  Sender: FDA-Public Use
  Company Number: None

PATIENT
  Age: 71 Year
  Sex: Male
  Weight: 86.1834 kg

DRUGS (1)
  1. DIGITEK   .025 MG [Suspect]
     Indication: ATRIAL FIBRILLATION
     Dosage: .025 MG  1 TABLET DAILY PO
     Route: 048
     Dates: start: 20080327, end: 20080430

REACTIONS (3)
  - FATIGUE [None]
  - MUSCLE SPASMS [None]
  - PHARMACEUTICAL PRODUCT COMPLAINT [None]
